FAERS Safety Report 7781910-4 (Version None)
Quarter: 2011Q3

REPORT INFORMATION
  Report Type: 
  Country: None (occurrence: None)
  Receive Date: 20110927
  Receipt Date: 20100816
  Transmission Date: 20111222
  Serious: No
  Sender: FDA-Public Use
  Company Number: US-BAYER-201014173NA

PATIENT

DRUGS (2)
  1. ULTRAVIST 150 [Suspect]
     Indication: PRODUCT USED FOR UNKNOWN INDICATION
  2. ULTRAVIST 150 [Suspect]

REACTIONS (2)
  - NAUSEA [None]
  - VOMITING [None]
